FAERS Safety Report 7346316-0 (Version None)
Quarter: 2011Q1

REPORT INFORMATION
  Report Type: 
  Country: None (occurrence: None)
  Receive Date: 20110311
  Receipt Date: 20110210
  Transmission Date: 20110831
  Serious: No
  Sender: FDA-Public Use
  Company Number: A0912917A

PATIENT
  Age: 68 Year
  Sex: Male

DRUGS (4)
  1. VUSION [Suspect]
     Dosage: 1APP THREE TIMES PER DAY
     Route: 054
     Dates: start: 20050201
  2. GLIPIZIDE [Concomitant]
  3. MICONAZOLE [Concomitant]
  4. NEXIUM [Concomitant]

REACTIONS (5)
  - TREMOR [None]
  - MEMORY IMPAIRMENT [None]
  - WEIGHT DECREASED [None]
  - BLOOD GLUCOSE DECREASED [None]
  - ASTHENIA [None]
